FAERS Safety Report 9587929 (Version 1)
Quarter: 2013Q4

REPORT INFORMATION
  Report Type: Spontaneous
  Country: US (occurrence: US)
  Receive Date: 20131003
  Receipt Date: 20131003
  Transmission Date: 20140711
  Serious: Yes (Other)
  Sender: FDA-Public Use
  Company Number: PHEH2013US020340

PATIENT
  Age: 55 Year
  Sex: Female
  Weight: 97.51 kg

DRUGS (3)
  1. CARBAMAZEPINE [Suspect]
     Dosage: 200 MG, BID
  2. CHANTIX [Interacting]
     Indication: EX-TOBACCO USER
     Dosage: UNK UKN, UNK
     Route: 048
  3. CHANTIX [Interacting]
     Dosage: 0.5 MG, DAILY
     Route: 048
     Dates: start: 20130909

REACTIONS (4)
  - Chronic obstructive pulmonary disease [Unknown]
  - Drug interaction [Unknown]
  - Blood cholesterol increased [Unknown]
  - Hypertension [Unknown]
